FAERS Safety Report 6168372-8 (Version None)
Quarter: 2009Q2

REPORT INFORMATION
  Report Type: 
  Country: None (occurrence: None)
  Receive Date: 20090423
  Receipt Date: 20090413
  Transmission Date: 20091009
  Serious: Yes (Other)
  Sender: FDA-Public Use
  Company Number: 1-18108310

PATIENT
  Age: 25 Year
  Sex: Male

DRUGS (1)
  1. PREDNISONE [Suspect]
     Indication: ARTHROPOD STING
     Dosage: 60 MG X 1, ORAL
     Route: 048

REACTIONS (3)
  - GENE MUTATION [None]
  - HYPOKALAEMIA [None]
  - QUADRIPLEGIA [None]
